FAERS Safety Report 5260326-9 (Version None)
Quarter: 2007Q1

REPORT INFORMATION
  Report Type: 
  Country: None (occurrence: None)
  Receive Date: 20070309
  Receipt Date: 20060712
  Transmission Date: 20070707
  Serious: No
  Sender: FDA-Public Use
  Company Number: US-GLAXOSMITHKLINE-A0611754A

PATIENT
  Age: 69 Year
  Sex: Female

DRUGS (1)
  1. TARGET ORIGINAL 2MG [Suspect]

REACTIONS (2)
  - APHTHOUS STOMATITIS [None]
  - INTENTIONAL DRUG MISUSE [None]
